FAERS Safety Report 7338643-8 (Version None)
Quarter: 2011Q1

REPORT INFORMATION
  Report Type: 
  Country: None (occurrence: None)
  Receive Date: 20110308
  Receipt Date: 20101007
  Transmission Date: 20110831
  Serious: Yes (Hospitalization)
  Sender: FDA-Public Use
  Company Number: A0886386A

PATIENT
  Age: 49 Year
  Sex: Male

DRUGS (1)
  1. AVANDIA [Suspect]
     Dosage: 8MG PER DAY
     Route: 048
     Dates: start: 20020101, end: 20090101

REACTIONS (6)
  - CHEST PAIN [None]
  - ANGIOPLASTY [None]
  - PAIN IN EXTREMITY [None]
  - CATHETER PLACEMENT [None]
  - CORONARY ARTERIAL STENT INSERTION [None]
  - DYSPNOEA [None]
